FAERS Safety Report 5013157-9 (Version None)
Quarter: 2006Q2

REPORT INFORMATION
  Report Type: 
  Country: None (occurrence: None)
  Receive Date: 20060530
  Receipt Date: 20060310
  Transmission Date: 20061013
  Serious: No
  Sender: FDA-Public Use
  Company Number: US-GLAXOSMITHKLINE-A0597129A

PATIENT
  Sex: Female

DRUGS (4)
  1. WELLBUTRIN XL [Suspect]
     Indication: DEPRESSION
     Dosage: 600MG PER DAY
     Route: 048
     Dates: start: 20060309
  2. SYNTHROID [Concomitant]
  3. LEXAPRO [Concomitant]
  4. CLONOPIN [Concomitant]

REACTIONS (7)
  - ANXIETY [None]
  - DRY MOUTH [None]
  - DYSPNOEA [None]
  - HEADACHE [None]
  - OVERDOSE [None]
  - THINKING ABNORMAL [None]
  - TREMOR [None]
